FAERS Safety Report 5580188-X (Version None)
Quarter: 2007Q4

REPORT INFORMATION
  Report Type: 
  Country: None (occurrence: None)
  Receive Date: 20071228
  Receipt Date: 20071221
  Transmission Date: 20080405
  Serious: Yes (Life-Threatening)
  Sender: FDA-Public Use
  Company Number: 062-20785-07121268

PATIENT

DRUGS (1)
  1. THALIDOMIDE [Suspect]
     Indication: DRUG USE FOR UNKNOWN INDICATION
     Dosage: 200 MG, QD, ORAL
     Route: 048

REACTIONS (2)
  - GENERAL PHYSICAL CONDITION ABNORMAL [None]
  - LERICHE SYNDROME [None]
